FAERS Safety Report 4407027-4 (Version None)
Quarter: 2004Q3

REPORT INFORMATION
  Report Type: 
  Country: None (occurrence: None)
  Receive Date: 20040724
  Receipt Date: 20040624
  Transmission Date: 20050211
  Serious: Yes (Death)
  Sender: FDA-Public Use
  Company Number: PHBS2004SE08320

PATIENT
  Age: 32 Year
  Sex: Male

DRUGS (1)
  1. DICLOFENAC [Suspect]
     Indication: PAIN

REACTIONS (4)
  - DYSPNOEA [None]
  - LOSS OF CONSCIOUSNESS [None]
  - MEDICATION ERROR [None]
  - RESPIRATORY DISTRESS [None]
